FAERS Safety Report 12628383 (Version 1)
Quarter: 2016Q3

REPORT INFORMATION
  Report Type: Spontaneous
  Country: US (occurrence: None)
  Receive Date: 20160805
  Receipt Date: 20160805
  Transmission Date: 20161109
  Serious: No
  Sender: FDA-Public Use
  Company Number: None

PATIENT
  Age: 66 Year
  Sex: Female
  Weight: 69.85 kg

DRUGS (6)
  1. BIO-IDENTICAL BIEST [Concomitant]
  2. OXYCODONE HCL 5MG TABLET [Suspect]
     Active Substance: OXYCODONE
     Indication: POSTOPERATIVE ANALGESIA
     Route: 048
     Dates: start: 20160715, end: 20160716
  3. PROGESTERONE. [Concomitant]
     Active Substance: PROGESTERONE
  4. 81 MG ECOTRIN [Concomitant]
  5. NATURAL THYROID HORMONE [Concomitant]
  6. TESTROSTERONE [Concomitant]

REACTIONS (4)
  - Heart rate increased [None]
  - Headache [None]
  - Product substitution issue [None]
  - Pain [None]

NARRATIVE: CASE EVENT DATE: 20160715
